FAERS Safety Report 19371896 (Version 4)
Quarter: 2021Q3

REPORT INFORMATION
  Report Type: Spontaneous
  Country: MX (occurrence: MX)
  Receive Date: 20210604
  Receipt Date: 20210713
  Transmission Date: 20211014
  Serious: Yes (Death, Life-Threatening, Hospitalization, Other)
  Sender: FDA-Public Use
  Company Number: MX-BRISTOL-MYERS SQUIBB COMPANY-BMS-2021-053552

PATIENT
  Age: 63 Year
  Sex: Male

DRUGS (1)
  1. OPDIVO [Suspect]
     Active Substance: NIVOLUMAB
     Indication: HEPATOCELLULAR CARCINOMA
     Dosage: 2 VIALS OF 100 MG AND ONE OF 40 MG   40 AND 100 MG (8TH CYCLE)
     Route: 042
     Dates: end: 20210531

REACTIONS (3)
  - Pancytopenia [Not Recovered/Not Resolved]
  - Counterfeit product administered [Unknown]
  - Shock [Not Recovered/Not Resolved]

NARRATIVE: CASE EVENT DATE: 20210531
